FAERS Safety Report 8515130-2 (Version None)
Quarter: 2012Q3

REPORT INFORMATION
  Report Type: 
  Country: None (occurrence: None)
  Receive Date: 20120717
  Receipt Date: 20120705
  Transmission Date: 20120928
  Serious: No
  Sender: FDA-Public Use
  Company Number: US-ASTRAZENECA-2012SE46051

PATIENT
  Age: 85 Year
  Sex: Female
  Weight: 56.7 kg

DRUGS (9)
  1. KLOR COM [Concomitant]
  2. VITAMIN TAB [Concomitant]
  3. PRESSUREVISION [Concomitant]
  4. LASIX [Concomitant]
  5. SYMBICORT [Suspect]
     Indication: PULMONARY HYPERTENSION
     Dosage: 2 PUFFS TWO TIMES A DAY
     Route: 055
     Dates: start: 20120611, end: 20120614
  6. LEVOTHYROXIM [Concomitant]
     Indication: THYROID DISORDER
  7. ENALAPRIL MALEATE [Concomitant]
  8. COMBIVENT [Concomitant]
  9. PROAIR HFA [Concomitant]

REACTIONS (3)
  - RASH PRURITIC [None]
  - OFF LABEL USE [None]
  - DRUG DOSE OMISSION [None]
